FAERS Safety Report 9464622 (Version 1)
Quarter: 2013Q3

REPORT INFORMATION
  Report Type: Spontaneous
  Country: US (occurrence: US)
  Receive Date: 20130819
  Receipt Date: 20130819
  Transmission Date: 20140515
  Serious: No
  Sender: FDA-Public Use
  Company Number: US-PFIZER INC-2013238106

PATIENT
  Age: 37 Year
  Sex: Male
  Weight: 83.9 kg

DRUGS (4)
  1. XELJANZ [Suspect]
     Indication: RHEUMATOID ARTHRITIS
     Dosage: 5 MG, 2X/DAY
     Dates: start: 201308
  2. FOLIC ACID [Concomitant]
     Dosage: 1 MG DAILY
  3. METHOTREXATE [Concomitant]
     Dosage: 20 MG (2.5MGX8), WEEKLY
  4. PREDNISONE [Concomitant]
     Dosage: UNK

REACTIONS (1)
  - Fatigue [Not Recovered/Not Resolved]
